FAERS Safety Report 18798576 (Version 1)
Quarter: 2021Q1

REPORT INFORMATION
  Report Type: Spontaneous
  Country: US (occurrence: US)
  Receive Date: 20210128
  Receipt Date: 20210128
  Transmission Date: 20210419
  Serious: Yes (Life-Threatening)
  Sender: FDA-Public Use
  Company Number: US-SA-2021SA025187

PATIENT
  Age: 37 Year
  Sex: Female

DRUGS (17)
  1. CLOBETASOL PROPIONATE E [Concomitant]
     Dosage: SOLUTION
  2. GABAPENTIN GA [Concomitant]
  3. DUPIXENT [Suspect]
     Active Substance: DUPILUMAB
     Indication: NASAL POLYPS
     Dosage: 300 MG, QOW
     Route: 058
  4. CLARITHROMYCIN. [Concomitant]
     Active Substance: CLARITHROMYCIN
  5. TRAZODONE [Concomitant]
     Active Substance: TRAZODONE HYDROCHLORIDE
  6. CERIZINE [CETIRIZINE HYDROCHLORIDE;PSEUDOEPHEDRINE HYDROCHLORIDE] [Concomitant]
  7. TOPIRAMATE ACCORD [Concomitant]
     Active Substance: TOPIRAMATE
  8. FLUCONAZOLE F [Concomitant]
  9. HYDROCORTISONE [HYDROCORTISONE SODIUM SUCCINATE] [Concomitant]
  10. TOPIRAMATE. [Concomitant]
     Active Substance: TOPIRAMATE
  11. CLONAZEPAM EG [Concomitant]
     Active Substance: CLONAZEPAM
  12. TIZANIDINE HCL [Concomitant]
     Active Substance: TIZANIDINE HYDROCHLORIDE
  13. AZITHROMYCIN ANHYDROUS. [Suspect]
     Active Substance: AZITHROMYCIN ANHYDROUS
     Dosage: 250 MG
  14. BUPROPION. [Suspect]
     Active Substance: BUPROPION
     Dosage: 150 MG
  15. BUSPIRON [BUSPIRONE HYDROCHLORIDE] [Concomitant]
     Active Substance: BUSPIRONE HYDROCHLORIDE
  16. TRAMADOL HYDROCHLORIDE. [Concomitant]
     Active Substance: TRAMADOL HYDROCHLORIDE
  17. HYDROCORTISON [HYDROCORTISONE SODIUM PHOSPHATE] [Concomitant]

REACTIONS (2)
  - Pruritus [Unknown]
  - Rash [Unknown]
